FAERS Safety Report 16716452 (Version 1)
Quarter: 2019Q3

REPORT INFORMATION
  Report Type: Spontaneous
  Country: DE (occurrence: DE)
  Receive Date: 20190819
  Receipt Date: 20190819
  Transmission Date: 20191005
  Serious: Yes (Other)
  Sender: FDA-Public Use
  Company Number: DE-ASCEND THERAPEUTICS US, LLC-2073321

PATIENT
  Age: 60 Year
  Sex: Female

DRUGS (4)
  1. GYNOKADIN DOSIERGEL (ESTRADIOL HEMIHYDRATE) (GEL) [Suspect]
     Active Substance: ESTRADIOL HEMIHYDRATE
     Route: 062
     Dates: start: 201903
  2. FAMENITA (PROGESTERONE) (CAPSULE)?INDICATION FOR USE: PREVENTION OF EN [Suspect]
     Active Substance: PROGESTERONE
     Route: 048
     Dates: start: 201903, end: 20190626
  3. ESTROGEL [Suspect]
     Active Substance: ESTRADIOL
     Indication: MENOPAUSAL SYMPTOMS
     Route: 062
     Dates: start: 201903
  4. FAMENITA (PROGESTERONE) (CAPSULE)?INDICATION FOR USE: PREVENTION OF EN [Suspect]
     Active Substance: PROGESTERONE
     Route: 048
     Dates: start: 20190628

REACTIONS (1)
  - Uterine haemorrhage [Not Recovered/Not Resolved]

NARRATIVE: CASE EVENT DATE: 20190703
